FAERS Safety Report 15384437 (Version 3)
Quarter: 2018Q4

REPORT INFORMATION
  Report Type: Spontaneous
  Country: US (occurrence: US)
  Receive Date: 20180914
  Receipt Date: 20181009
  Transmission Date: 20190204
  Serious: No
  Sender: FDA-Public Use
  Company Number: US-TEVA-2018-US-952957

PATIENT
  Age: 40 Year

DRUGS (1)
  1. PROAIR RESPICLICK [Suspect]
     Active Substance: ALBUTEROL SULFATE
     Indication: BRONCHOSPASM
     Dosage: 1- 2 PUFFS
     Route: 065

REACTIONS (3)
  - Bronchospasm [Unknown]
  - Drug ineffective [Unknown]
  - Device malfunction [Unknown]
